FAERS Safety Report 8002898-7 (Version None)
Quarter: 2011Q4

REPORT INFORMATION
  Report Type: 
  Country: None (occurrence: None)
  Receive Date: 20111222
  Receipt Date: 20110224
  Transmission Date: 20120403
  Serious: No
  Sender: FDA-Public Use
  Company Number: US-GLAXOSMITHKLINE-A0915288A

PATIENT
  Age: 62 Year
  Sex: Male

DRUGS (2)
  1. AVODART [Suspect]
     Indication: PROSTATOMEGALY
     Dosage: 1CAP PER DAY
     Route: 048
     Dates: start: 20110201
  2. SINEMET [Concomitant]

REACTIONS (3)
  - INSOMNIA [None]
  - ABDOMINAL DISCOMFORT [None]
  - NOCTURIA [None]
